FAERS Safety Report 18589961 (Version 1)
Quarter: 2020Q4

REPORT INFORMATION
  Report Type: Spontaneous
  Country: US (occurrence: US)
  Receive Date: 20201207
  Receipt Date: 20201207
  Transmission Date: 20210114
  Serious: Yes (Hospitalization)
  Sender: FDA-Public Use
  Company Number: None

PATIENT
  Age: 62 Year
  Sex: Female

DRUGS (22)
  1. AZITHROMYCIN ANHYDROUS. [Concomitant]
     Active Substance: AZITHROMYCIN ANHYDROUS
  2. LANTUS [Concomitant]
     Active Substance: INSULIN GLARGINE
  3. METFORMIN [Concomitant]
     Active Substance: METFORMIN HYDROCHLORIDE
  4. PIQRAY [Suspect]
     Active Substance: ALPELISIB
     Indication: BREAST CANCER FEMALE
     Route: 048
     Dates: start: 20201002
  5. ATENOLOL. [Concomitant]
     Active Substance: ATENOLOL
  6. JANUVIA [Concomitant]
     Active Substance: SITAGLIPTIN PHOSPHATE
  7. LOSARTAN/HCTZ [Concomitant]
     Active Substance: HYDROCHLOROTHIAZIDE\LOSARTAN
  8. METOCLOPRAM [Concomitant]
     Active Substance: METOCLOPRAMIDE
  9. NOVOLOG [Concomitant]
     Active Substance: INSULIN ASPART
  10. VENLAFAXINE [Concomitant]
     Active Substance: VENLAFAXINE HYDROCHLORIDE
  11. ALLOPURINOL. [Concomitant]
     Active Substance: ALLOPURINOL
  12. TIZANIDINE. [Concomitant]
     Active Substance: TIZANIDINE
  13. DIPHEN/ATROP [Concomitant]
     Active Substance: ATROPINE SULFATE\DIPHENOXYLATE
  14. MELOXICAM. [Concomitant]
     Active Substance: MELOXICAM
  15. PIOGLITAZONE. [Concomitant]
     Active Substance: PIOGLITAZONE
  16. PREDNISONE. [Concomitant]
     Active Substance: PREDNISONE
  17. ALBUTEROL. [Concomitant]
     Active Substance: ALBUTEROL
  18. OMEPRAZOLE. [Concomitant]
     Active Substance: OMEPRAZOLE
  19. PREGABALIN. [Concomitant]
     Active Substance: PREGABALIN
  20. ROSUVASTATIN. [Concomitant]
     Active Substance: ROSUVASTATIN
  21. VIRT-PHOS [Concomitant]
  22. ESZOPICLONE. [Concomitant]
     Active Substance: ESZOPICLONE

REACTIONS (5)
  - Weight decreased [None]
  - Gastrointestinal disorder [None]
  - COVID-19 [None]
  - Blood glucose increased [None]
  - Fatigue [None]

NARRATIVE: CASE EVENT DATE: 20201124
